FAERS Safety Report 9057968 (Version 1)
Quarter: 2013Q1

REPORT INFORMATION
  Report Type: Spontaneous
  Country: US (occurrence: None)
  Receive Date: 20130204
  Receipt Date: 20130204
  Transmission Date: 20140127
  Serious: No
  Sender: FDA-Public Use
  Company Number: None

PATIENT
  Age: 53 Year
  Sex: Male

DRUGS (2)
  1. RIBAVIRIN [Suspect]
     Indication: HEPATITIS C
     Route: 048
     Dates: start: 20121214, end: 20130108
  2. PEGASYS 180MCG GENENTECH [Suspect]
     Indication: HEPATITIS C
     Route: 058
     Dates: start: 20121214, end: 20130108

REACTIONS (1)
  - Adverse drug reaction [None]
